FAERS Safety Report 6673703-6 (Version None)
Quarter: 2010Q1

REPORT INFORMATION
  Report Type: 
  Country: None (occurrence: None)
  Receive Date: 20100329
  Receipt Date: 20090910
  Transmission Date: 20100710
  Serious: Yes (Other)
  Sender: FDA-Public Use
  Company Number: 2009236615

PATIENT
  Age: 32 Year
  Sex: Male
  Weight: 136.1 kg

DRUGS (5)
  1. GEODON [Suspect]
     Indication: AGGRESSION
     Dates: start: 20090420
  2. GEODON [Suspect]
     Indication: ASPERGER'S DISORDER
     Dates: start: 20090420
  3. GEODON [Suspect]
     Indication: IMPULSIVE BEHAVIOUR
     Dates: start: 20090420
  4. LORAZEPAM [Concomitant]
  5. ABILIFY [Concomitant]

REACTIONS (7)
  - AKATHISIA [None]
  - ANXIETY [None]
  - DEPRESSED MOOD [None]
  - INSOMNIA [None]
  - RESTLESSNESS [None]
  - TACHYPHRENIA [None]
  - TREMOR [None]
